FAERS Safety Report 9361316 (Version 2)
Quarter: 2013Q3

REPORT INFORMATION
  Report Type: Not Available
  Country: GB (occurrence: GB)
  Receive Date: 20130621
  Receipt Date: 20130826
  Transmission Date: 20140515
  Serious: Yes (Disabling)
  Sender: FDA-Public Use
  Company Number: GB-PURDUE-GBR-2013-0014694

PATIENT
  Sex: Female

DRUGS (3)
  1. BUPRENORPHINE TRANSDERMAL SYSTEM [Suspect]
     Indication: PRODUCT USED FOR UNKNOWN INDICATION
     Dosage: UNK
     Route: 065
     Dates: start: 20130507
  2. PREGABALIN [Suspect]
     Indication: ANALGESIC THERAPY
     Dosage: 200 MG, TID
     Route: 048
  3. SOLPADOL [Suspect]
     Indication: SPINAL DISORDER
     Dosage: 100 MG, TID
     Route: 048

REACTIONS (4)
  - Immobile [Unknown]
  - Dizziness [Unknown]
  - Dry mouth [Unknown]
  - Swollen tongue [Unknown]
